FAERS Safety Report 7833110-7 (Version None)
Quarter: 2011Q4

REPORT INFORMATION
  Report Type: 
  Country: None (occurrence: None)
  Receive Date: 20111024
  Receipt Date: 20111017
  Transmission Date: 20120403
  Serious: Yes (Hospitalization)
  Sender: FDA-Public Use
  Company Number: JP-JNJFOC-20110911133

PATIENT
  Age: 86 Year
  Sex: Female

DRUGS (5)
  1. TRAMADOL HYDROCHLORIDE/ACETAMINOPHEN [Suspect]
     Indication: PAIN
     Dosage: 4 DF X 1 PER 1 DAY
     Route: 065
     Dates: start: 20110825, end: 20110908
  2. MOTILIUM [Concomitant]
     Indication: PROPHYLAXIS OF NAUSEA AND VOMITING
     Dosage: 1 PER 1 DAY
     Route: 048
     Dates: start: 20110811, end: 20110825
  3. TRAMADOL HYDROCHLORIDE/ACETAMINOPHEN [Suspect]
     Indication: BACK PAIN
     Dosage: 2 DF X 1 PER 1 DAY
     Route: 065
     Dates: start: 20110811, end: 20110824
  4. TRAMADOL HYDROCHLORIDE/ACETAMINOPHEN [Suspect]
     Dosage: 2 DF X 1 PER 1 DAY
     Route: 065
     Dates: start: 20110811, end: 20110824
  5. TRAMADOL HYDROCHLORIDE/ACETAMINOPHEN [Suspect]
     Dosage: 4 DF X 1 PER 1 DAY
     Route: 065
     Dates: start: 20110825, end: 20110908

REACTIONS (2)
  - DELIRIUM [None]
  - ENTEROCOLITIS [None]
